FAERS Safety Report 9728757 (Version 2)
Quarter: 2014Q1

REPORT INFORMATION
  Report Type: Report from Study
  Country: US (occurrence: US)
  Receive Date: 20131204
  Receipt Date: 20140121
  Transmission Date: 20141002
  Serious: Yes (Other)
  Sender: FDA-Public Use
  Company Number: US-ABBVIE-13P-163-1173386-00

PATIENT
  Age: 57 Year
  Sex: Female
  Weight: 92.16 kg

DRUGS (7)
  1. HUMIRA [Suspect]
     Indication: PSORIATIC ARTHROPATHY
     Dates: start: 2011, end: 201302
  2. HUMIRA [Suspect]
     Dates: start: 201302
  3. METHOTREXATE [Concomitant]
     Indication: PSORIATIC ARTHROPATHY
  4. SIMVASTATIN [Concomitant]
     Indication: BLOOD CHOLESTEROL INCREASED
  5. EFFEXOR [Concomitant]
     Indication: ANXIETY
  6. FOLIC ACID [Concomitant]
     Indication: DRUG THERAPY
  7. MULTIVITAMIN [Concomitant]
     Indication: VITAMIN SUPPLEMENTATION

REACTIONS (7)
  - Diabetes mellitus [Not Recovered/Not Resolved]
  - Vocal cord polyp [Recovering/Resolving]
  - Diabetic neuropathy [Unknown]
  - Dysphonia [Not Recovered/Not Resolved]
  - Psoriasis [Recovered/Resolved]
  - Pain [Recovered/Resolved]
  - Pain [Recovered/Resolved]
